FAERS Safety Report 7580261-0 (Version None)
Quarter: 2011Q2

REPORT INFORMATION
  Report Type: 
  Country: None (occurrence: None)
  Receive Date: 20110629
  Receipt Date: 20110623
  Transmission Date: 20111010
  Serious: Yes (Hospitalization)
  Sender: FDA-Public Use
  Company Number: IT-ABBOTT-11P-083-0734716-00

PATIENT
  Age: 29 Year
  Sex: Female

DRUGS (3)
  1. DEPAKENE [Suspect]
     Indication: SUICIDE ATTEMPT
     Dosage: ONCE
     Route: 048
     Dates: start: 20110618, end: 20110618
  2. ZOLOFT [Suspect]
     Indication: SUICIDE ATTEMPT
     Dosage: ONCE
     Route: 048
     Dates: start: 20110618, end: 20110618
  3. VALPROIC ACID [Suspect]
     Indication: SUICIDE ATTEMPT
     Dosage: ONCE
     Route: 048
     Dates: start: 20110618, end: 20110618

REACTIONS (3)
  - MULTIPLE DRUG OVERDOSE INTENTIONAL [None]
  - VOMITING [None]
  - AMMONIA INCREASED [None]
